FAERS Safety Report 8871770 (Version 1)
Quarter: 2012Q4

REPORT INFORMATION
  Report Type: 
  Country: US (occurrence: US)
  Receive Date: 20121026
  Receipt Date: 20121026
  Transmission Date: 20130627
  Serious: No
  Sender: FDA-Public Use
  Company Number: US-AMGEN-USASP2012048367

PATIENT
  Age: 55 Year
  Sex: Female
  Weight: 122.45 kg

DRUGS (14)
  1. ENBREL [Suspect]
     Indication: PRODUCT USED FOR UNKNOWN INDICATION
     Dosage: 50 mg, qwk
     Route: 058
  2. ZOCOR [Concomitant]
     Dosage: 5 mg, UNK
  3. SINGULAIR [Concomitant]
     Dosage: 4 mg, UNK
  4. METHOTREXATE [Concomitant]
     Dosage: 2.5 mg, UNK
  5. PREDNISONE [Concomitant]
     Dosage: 1 mg, UNK
  6. FOLIC ACID [Concomitant]
     Dosage: 1 mg, UNK
  7. ALBUTEROL                          /00139501/ [Concomitant]
     Dosage: (AER 90MCG)
  8. WELLBUTRIN [Concomitant]
     Dosage: 75 mg, UNK
  9. PULMICORD [Concomitant]
     Dosage: ( INH 180 MC)
  10. LEXAPRO [Concomitant]
     Dosage: 20 mg, UNK
  11. VITAMIN D /00107901/ [Concomitant]
     Dosage: 1000 unit, UNK
  12. ALEVE [Concomitant]
     Dosage: 220 mg, UNK
  13. CALCIUM D                          /00944201/ [Concomitant]
     Dosage: UNK
  14. B12                                /00056201/ [Concomitant]
     Dosage: 1 mg, UNK

REACTIONS (3)
  - Sinusitis [Unknown]
  - Asthma [Unknown]
  - Upper respiratory tract infection [Unknown]
